FAERS Safety Report 24727673 (Version 2)
Quarter: 2025Q3

REPORT INFORMATION
  Report Type: Report from Study
  Country: US (occurrence: US)
  Receive Date: 20241212
  Receipt Date: 20250803
  Transmission Date: 20251021
  Serious: Yes (Other)
  Sender: ALEXION PHARMACEUTICALS
  Company Number: US-AstraZeneca-CH-00761790A

PATIENT
  Sex: Female

DRUGS (1)
  1. OLAPARIB [Suspect]
     Active Substance: OLAPARIB
     Route: 065

REACTIONS (15)
  - Memory impairment [Unknown]
  - Taste disorder [Unknown]
  - Appetite disorder [Unknown]
  - Rhinorrhoea [Unknown]
  - Hernia [Unknown]
  - Foot fracture [Unknown]
  - Fear of disease [Unknown]
  - Blood pressure measurement [Unknown]
  - Fatigue [Unknown]
  - Fall [Unknown]
  - Nausea [Unknown]
  - Weight decreased [Unknown]
  - Crying [Unknown]
  - Dizziness [Unknown]
  - Blood folate decreased [Unknown]
